FAERS Safety Report 11226759 (Version 4)
Quarter: 2016Q2

REPORT INFORMATION
  Report Type: Spontaneous
  Country: US (occurrence: US)
  Receive Date: 20150630
  Receipt Date: 20160502
  Transmission Date: 20160815
  Serious: Yes (Hospitalization, Other)
  Sender: FDA-Public Use
  Company Number: US-SA-2015SA080351

PATIENT
  Age: 47 Year
  Sex: Female

DRUGS (4)
  1. LOSARTAN. [Concomitant]
     Active Substance: LOSARTAN
  2. AUBAGIO [Suspect]
     Active Substance: TERIFLUNOMIDE
     Indication: MULTIPLE SCLEROSIS
     Route: 048
     Dates: start: 20140703
  3. AUBAGIO [Suspect]
     Active Substance: TERIFLUNOMIDE
     Indication: MULTIPLE SCLEROSIS
     Route: 048
     Dates: start: 20160123
  4. AMLODIPINE [Concomitant]
     Active Substance: AMLODIPINE BESYLATE

REACTIONS (15)
  - Multiple sclerosis relapse [Unknown]
  - Peripheral swelling [Unknown]
  - Faeces soft [Unknown]
  - Rash [Unknown]
  - Hypertension [Unknown]
  - Diarrhoea [Unknown]
  - Weight decreased [Unknown]
  - Dyspnoea [Unknown]
  - Unevaluable event [Unknown]
  - Skin discolouration [Unknown]
  - Pruritus [Recovered/Resolved]
  - Paraesthesia [Unknown]
  - Drug dose omission [Unknown]
  - Decreased appetite [Unknown]
  - Multiple sclerosis relapse [Unknown]

NARRATIVE: CASE EVENT DATE: 20150602
